FAERS Safety Report 8833378 (Version 3)
Quarter: 2013Q1

REPORT INFORMATION
  Report Type: Spontaneous
  Country: FR (occurrence: FR)
  Receive Date: 20121010
  Receipt Date: 20130116
  Transmission Date: 20140127
  Serious: Yes (Hospitalization)
  Sender: FDA-Public Use
  Company Number: FR-ROCHE-1139130

PATIENT
  Sex: Male

DRUGS (28)
  1. MABTHERA [Suspect]
     Indication: LYMPHOMA
     Route: 042
     Dates: start: 20120620
  2. MABTHERA [Suspect]
     Route: 042
     Dates: start: 20120713
  3. BACTRIM FORTE [Suspect]
     Indication: PROPHYLAXIS
     Route: 048
     Dates: start: 20120621
  4. BACTRIM FORTE [Suspect]
     Route: 048
     Dates: start: 20120814
  5. DOXORUBICINE [Suspect]
     Indication: B-CELL LYMPHOMA
     Route: 042
     Dates: start: 20120620
  6. DOXORUBICINE [Suspect]
     Route: 042
     Dates: start: 20120713
  7. ENDOXAN [Suspect]
     Indication: B-CELL LYMPHOMA
     Route: 042
     Dates: start: 20120620
  8. ENDOXAN [Suspect]
     Route: 042
     Dates: start: 20120713
  9. VINCRISTINE [Suspect]
     Indication: B-CELL LYMPHOMA
     Route: 042
     Dates: start: 20120620
  10. VINCRISTINE [Suspect]
     Route: 042
     Dates: start: 20120713
  11. ZYLORIC [Suspect]
     Indication: GOUT
     Route: 048
     Dates: start: 20120621
  12. ZYLORIC [Suspect]
     Route: 048
     Dates: start: 20120814
  13. ZOPHREN [Suspect]
     Indication: PRODUCT USED FOR UNKNOWN INDICATION
     Route: 042
     Dates: start: 20120620
  14. UROMITEXAN [Suspect]
     Indication: PROPHYLAXIS
     Route: 042
     Dates: start: 20120620
  15. CORTANCYL [Suspect]
     Indication: PRODUCT USED FOR UNKNOWN INDICATION
     Route: 048
     Dates: start: 20120622, end: 20120624
  16. POLARAMINE [Suspect]
     Indication: HYPERSENSITIVITY
     Route: 048
  17. LOXEN [Suspect]
     Indication: HYPERTENSION
     Route: 048
     Dates: start: 20120621
  18. ZELITREX [Suspect]
     Indication: PRODUCT USED FOR UNKNOWN INDICATION
     Route: 048
     Dates: start: 20120621
  19. ZELITREX [Suspect]
     Route: 048
     Dates: start: 20120814
  20. SPECIAFOLDINE [Suspect]
     Indication: VITAMIN SUPPLEMENTATION
     Route: 048
     Dates: start: 20120621
  21. SPECIAFOLDINE [Suspect]
     Route: 048
     Dates: start: 20120814
  22. GRANOCYTE [Suspect]
     Indication: PRODUCT USED FOR UNKNOWN INDICATION
     Route: 058
     Dates: start: 20120625, end: 20120630
  23. GRANOCYTE [Suspect]
     Route: 058
     Dates: start: 20120815, end: 20120820
  24. ARANESP [Suspect]
     Indication: ANAEMIA
     Route: 058
  25. ARANESP [Suspect]
     Route: 058
     Dates: start: 20120814
  26. ARANESP [Suspect]
     Route: 058
  27. METHYLPREDNISOLONE [Suspect]
     Indication: B-CELL LYMPHOMA
     Route: 042
     Dates: start: 20120620
  28. METHYLPREDNISOLONE [Suspect]
     Route: 042
     Dates: start: 20120713

REACTIONS (1)
  - Neuropathy peripheral [Not Recovered/Not Resolved]
